FAERS Safety Report 6856401-5 (Version None)
Quarter: 2010Q3

REPORT INFORMATION
  Report Type: 
  Country: None (occurrence: None)
  Receive Date: 20100719
  Receipt Date: 20100709
  Transmission Date: 20110219
  Serious: Yes (Death, Hospitalization)
  Sender: FDA-Public Use
  Company Number: FR-PFIZER INC-2010064094

PATIENT
  Age: 16 Year
  Sex: Female

DRUGS (10)
  1. CEFPODOXIME PROXETIL [Suspect]
     Indication: SUICIDE ATTEMPT
     Dosage: UNK, ONCE
     Route: 048
  2. CELEBREX [Suspect]
     Indication: SUICIDE ATTEMPT
     Dosage: UNK, ONCE
     Route: 048
  3. TRIMEBUTINE MALEATE [Suspect]
     Indication: SUICIDE ATTEMPT
     Dosage: UNK, ONCE
     Route: 048
  4. PROFENID [Suspect]
     Indication: SUICIDE ATTEMPT
     Dosage: UNK, ONCE
     Route: 048
  5. DOLIPRANE [Suspect]
     Indication: SUICIDE ATTEMPT
     Dosage: UNK, ONCE
     Route: 048
  6. COLCHIMAX (FRANCE) [Suspect]
     Indication: SUICIDE ATTEMPT
     Dosage: UNK, ONCE
     Route: 048
  7. DI-ANTALVIC [Suspect]
     Indication: SUICIDE ATTEMPT
     Dosage: UNK, ONCE
     Route: 048
  8. HEPT-A-MYL [Suspect]
     Indication: SUICIDE ATTEMPT
     Dosage: UNK, ONCE
     Route: 048
  9. CLARITIN [Suspect]
     Indication: SUICIDE ATTEMPT
     Dosage: UNK, ONCE
     Route: 048
  10. TETRAZEPAM [Suspect]
     Indication: SUICIDE ATTEMPT
     Dosage: UNK, ONCE
     Route: 048

REACTIONS (5)
  - BONE MARROW FAILURE [None]
  - HEPATOCELLULAR INJURY [None]
  - LEUKOCYTOSIS [None]
  - METABOLIC ACIDOSIS [None]
  - MULTI-ORGAN FAILURE [None]
